FAERS Safety Report 23756498 (Version 2)
Quarter: 2024Q2

REPORT INFORMATION
  Report Type: Spontaneous
  Country: US (occurrence: US)
  Receive Date: 20240418
  Receipt Date: 20240520
  Transmission Date: 20240717
  Serious: No
  Sender: FDA-Public Use
  Company Number: US-SANOFI-02012546

PATIENT
  Sex: Female

DRUGS (1)
  1. DUPIXENT [Suspect]
     Active Substance: DUPILUMAB
     Indication: Neurodermatitis
     Dosage: 300 MG, QOW

REACTIONS (1)
  - Injection site pain [Unknown]
